FAERS Safety Report 8444212-9 (Version None)
Quarter: 2012Q2

REPORT INFORMATION
  Report Type: 
  Country: None (occurrence: None)
  Receive Date: 20120618
  Receipt Date: 20120604
  Transmission Date: 20120825
  Serious: Yes (Hospitalization)
  Sender: FDA-Public Use
  Company Number: US-SANOFI-AVENTIS-2012SA040268

PATIENT
  Sex: Male

DRUGS (3)
  1. ALENDRONATE SODIUM [Suspect]
  2. ANTIHYPERTENSIVES [Suspect]
     Dates: start: 20120328
  3. PLAVIX [Suspect]

REACTIONS (4)
  - COMA [None]
  - RASH [None]
  - RASH ERYTHEMATOUS [None]
  - RASH GENERALISED [None]
